FAERS Safety Report 7214381-7 (Version None)
Quarter: 2011Q1

REPORT INFORMATION
  Report Type: 
  Country: None (occurrence: None)
  Receive Date: 20110107
  Receipt Date: 20101229
  Transmission Date: 20110831
  Serious: Yes (Hospitalization, Other)
  Sender: FDA-Public Use
  Company Number: PHHO2010NL17467

PATIENT
  Sex: Male
  Weight: 89 kg

DRUGS (5)
  1. BLINDED NO TREATMENT RECEIVED [Suspect]
     Indication: CARDIAC FAILURE
     Dosage: NO TREATMENT
     Dates: start: 20101014, end: 20101102
  2. COMPARATOR ENALAPRIL [Suspect]
  3. BLINDED ALISKIREN [Suspect]
     Indication: CARDIAC FAILURE
     Dosage: NO TREATMENT
     Dates: start: 20101014, end: 20101102
  4. BLINDED ENALAPRIL [Suspect]
     Indication: CARDIAC FAILURE
     Dosage: NO TREATMENT
     Dates: start: 20101014, end: 20101102
  5. ALISKIREN [Suspect]

REACTIONS (3)
  - CONCOMITANT DISEASE PROGRESSION [None]
  - IMPLANTABLE DEFIBRILLATOR INSERTION [None]
  - LEFT VENTRICULAR DYSFUNCTION [None]
